FAERS Safety Report 7996349-6 (Version None)
Quarter: 2011Q4

REPORT INFORMATION
  Report Type: 
  Country: None (occurrence: None)
  Receive Date: 20111220
  Receipt Date: 20111213
  Transmission Date: 20120403
  Serious: Yes (Hospitalization, Other)
  Sender: FDA-Public Use
  Company Number: US-ASTRAZENECA-2010SE08422

PATIENT
  Age: 84 Year
  Sex: Male
  Weight: 84.4 kg

DRUGS (19)
  1. ASPIRIN [Concomitant]
  2. NITROSTAT [Concomitant]
     Indication: CHEST PAIN
     Route: 060
  3. LOPRESSOR [Concomitant]
     Route: 048
  4. NEXIUM [Suspect]
     Indication: GASTROOESOPHAGEAL REFLUX DISEASE
     Route: 048
  5. ROBAXIN [Concomitant]
     Dosage: 750 MG EVERY 12 HOURS, HALF TABLET WITH LUNCH AND ONE TABLET AT NIGHTTIME
  6. NEXIUM [Suspect]
     Route: 048
  7. OMEPRAZOLE [Suspect]
     Route: 048
  8. COZAAR [Concomitant]
     Route: 048
  9. DESYREL [Concomitant]
     Route: 048
  10. PLAVIX [Concomitant]
     Route: 048
  11. DIGOXIN [Concomitant]
     Route: 048
  12. FISH OIL [Concomitant]
     Route: 048
  13. LASIX [Concomitant]
     Route: 048
  14. NITROSTAT [Concomitant]
     Indication: CHEST DISCOMFORT
     Route: 060
  15. ASPIRIN [Concomitant]
  16. LASIX [Concomitant]
     Route: 048
  17. DESYREL [Concomitant]
     Route: 048
  18. NEXIUM [Suspect]
     Route: 048
  19. ZOCOR [Concomitant]

REACTIONS (9)
  - MYOCARDIAL INFARCTION [None]
  - COUGH [None]
  - BACK PAIN [None]
  - ACUTE MYOCARDIAL INFARCTION [None]
  - INJURY [None]
  - PAIN IN EXTREMITY [None]
  - ECCHYMOSIS [None]
  - DRUG INEFFECTIVE [None]
  - CHOKING [None]
